FAERS Safety Report 20047288 (Version 1)
Quarter: 2021Q4

REPORT INFORMATION
  Report Type: Spontaneous
  Country: US (occurrence: US)
  Receive Date: 20211109
  Receipt Date: 20211109
  Transmission Date: 20220303
  Serious: Yes (Life-Threatening, Hospitalization, Disabling)
  Sender: FDA-Public Use
  Company Number: US-STRIDES ARCOLAB LIMITED-2021SP028899

PATIENT
  Age: 20 Year
  Sex: Female

DRUGS (5)
  1. URSODIOL [Suspect]
     Active Substance: URSODIOL
     Indication: Disseminated tuberculosis
     Dosage: UNK
     Route: 065
  2. RIFABUTIN [Suspect]
     Active Substance: RIFABUTIN
     Indication: Disseminated tuberculosis
     Dosage: UNK
     Route: 065
  3. LEVOFLOXACIN [Suspect]
     Active Substance: LEVOFLOXACIN
     Indication: Disseminated tuberculosis
     Dosage: UNK
     Route: 065
  4. PYRAZINAMIDE [Suspect]
     Active Substance: PYRAZINAMIDE
     Indication: Disseminated tuberculosis
     Dosage: UNK
     Route: 065
  5. SOLU-MEDROL [Suspect]
     Active Substance: METHYLPREDNISOLONE SODIUM SUCCINATE
     Indication: Disseminated tuberculosis
     Dosage: UNK
     Route: 065

REACTIONS (1)
  - Drug ineffective for unapproved indication [Unknown]
